FAERS Safety Report 18258982 (Version 2)
Quarter: 2020Q4

REPORT INFORMATION
  Report Type: Spontaneous
  Country: US (occurrence: US)
  Receive Date: 20200911
  Receipt Date: 20201006
  Transmission Date: 20210113
  Serious: Yes (Death, Hospitalization)
  Sender: FDA-Public Use
  Company Number: US-NEUROCRINE BIOSCIENCES INC.-2020NBI03307

PATIENT
  Age: 73 Year
  Sex: Male

DRUGS (13)
  1. SYNTHROID [Concomitant]
     Active Substance: LEVOTHYROXINE SODIUM
     Route: 048
     Dates: start: 20190320
  2. RISPERDAL [Concomitant]
     Active Substance: RISPERIDONE
     Dosage: ONE 1MG TABLET EVERY MORNING AND ONE 2 MG TABLET EVERY NIGHT
     Route: 048
     Dates: start: 20200702
  3. DULCOLAX NOS [Concomitant]
     Active Substance: BISACODYL OR DOCUSATE SODIUM
     Indication: CONSTIPATION
     Dosage: 1 TABLET AT NIGHT AS NEEDED IF NO BOWEL MOVEMENT FOR 3 DAYS
     Route: 048
     Dates: start: 20180521
  4. LASIX [Concomitant]
     Active Substance: FUROSEMIDE
     Dosage: EVERY MORNING
     Route: 048
     Dates: start: 20200115
  5. RISPERDAL [Concomitant]
     Active Substance: RISPERIDONE
     Route: 048
     Dates: start: 20190823, end: 20200702
  6. MILK OF MAGNESIA [Concomitant]
     Active Substance: MAGNESIUM HYDROXIDE
     Indication: CONSTIPATION
     Dosage: 400 MG/5ML 30 ML EVERY DAY AS NEEDED AS NEEDED IF NO BOWEL MOVEMENT FOR 2 DAYS
     Route: 048
  7. KLOR-CON [Concomitant]
     Active Substance: POTASSIUM CHLORIDE
     Dosage: EVERY MORNING; 10 MEQ TABLET ER
     Route: 048
     Dates: start: 20200115
  8. DILANTIN [Concomitant]
     Active Substance: PHENYTOIN
     Dosage: MORNING AND AT BEDTIME, 100 MG CAPSULE EXTENDED
     Route: 048
     Dates: start: 20181010
  9. NIACIN. [Concomitant]
     Active Substance: NIACIN
     Dosage: AT BEDTIME WITH SNACK; 500MG ER 24H
     Route: 048
     Dates: start: 20190603
  10. SEROQUEL [Concomitant]
     Active Substance: QUETIAPINE FUMARATE
     Dosage: AT BEDTIME
     Route: 048
     Dates: start: 201907
  11. INGREZZA [Suspect]
     Active Substance: VALBENAZINE
     Indication: TARDIVE DYSKINESIA
     Dosage: EVERY MORNING
     Route: 048
     Dates: start: 20191209, end: 20200809
  12. MIRALAX [Concomitant]
     Active Substance: POLYETHYLENE GLYCOL 3350
     Dosage: MIX 17 GRAMS IN WATER OR JUICE
     Route: 048
  13. NEOSPORIN [Concomitant]
     Active Substance: BACITRACIN ZINC\NEOMYCIN SULFATE\POLYMYXIN B SULFATE
     Indication: SKIN DISORDER
     Dosage: 3.5-400-5000; AS NEEDED UP TO 3 TIMES DAILY
     Route: 003
     Dates: start: 20151014

REACTIONS (3)
  - Pneumonia [Fatal]
  - COVID-19 [Fatal]
  - Depressed level of consciousness [Unknown]

NARRATIVE: CASE EVENT DATE: 202007
